FAERS Safety Report 6496542-8 (Version None)
Quarter: 2009Q4

REPORT INFORMATION
  Report Type: 
  Country: None (occurrence: None)
  Receive Date: 20091210
  Receipt Date: 20091028
  Transmission Date: 20100525
  Serious: Yes (Life-Threatening, Hospitalization, Disabling)
  Sender: FDA-Public Use
  Company Number: JP-GUERBET-20090043

PATIENT
  Age: 73 Year
  Sex: Male

DRUGS (3)
  1. LIPIODOL: / ETHIODIZED OIL [Suspect]
     Indication: THERAPEUTIC EMBOLISATION
     Dosage: 4.5, ML MILLILITRE(S), 1, 1, TOTAL; INTRA-ARTERIAL
     Route: 013
     Dates: start: 20090505, end: 20090505
  2. OXILAN-300 [Suspect]
     Dosage: 2, ML MILLILITRE(S), 1, 1, TOTAL; INTRA-ARTERIAL
     Route: 013
     Dates: start: 20060505, end: 20060505
  3. NOVANTRONE [Suspect]
     Indication: THERAPEUTIC EMBOLISATION
     Dosage: 1, ML MILLILITRE(S), 1, 1, TOTAL; INTRA-ARTERIAL
     Route: 013
     Dates: start: 20060505, end: 20060505

REACTIONS (5)
  - GALLBLADDER NECROSIS [None]
  - INTERSTITIAL LUNG DISEASE [None]
  - OFF LABEL USE [None]
  - PERITONITIS [None]
  - RESPIRATORY FAILURE [None]
